FAERS Safety Report 8614266-5 (Version None)
Quarter: 2012Q3

REPORT INFORMATION
  Report Type: 
  Country: None (occurrence: None)
  Receive Date: 20120823
  Receipt Date: 20120813
  Transmission Date: 20120928
  Serious: Yes (Hospitalization, Disabling, Other)
  Sender: FDA-Public Use
  Company Number: US-009507513-1202USA03507

PATIENT

DRUGS (6)
  1. PRILOSEC [Concomitant]
     Dates: start: 20070101
  2. FOSAMAX PLUS D [Suspect]
     Indication: OSTEOPOROSIS
     Route: 048
  3. FOSAMAX [Suspect]
     Indication: OSTEOPENIA
  4. MK-9278 [Concomitant]
     Dates: start: 19920101
  5. FOSAMAX [Suspect]
     Indication: OSTEOPOROSIS
     Dosage: 70 MG, UNK
     Route: 048
     Dates: start: 19950101, end: 20090701
  6. FOSAMAX PLUS D [Suspect]
     Indication: OSTEOPENIA

REACTIONS (45)
  - RHINITIS ALLERGIC [None]
  - ONYCHOMYCOSIS [None]
  - LOW TURNOVER OSTEOPATHY [None]
  - TOOTH DISORDER [None]
  - CONSTIPATION [None]
  - SINUS HEADACHE [None]
  - CARPAL TUNNEL SYNDROME [None]
  - VERTEBRAL FORAMINAL STENOSIS [None]
  - ANXIETY [None]
  - DEPRESSION [None]
  - PELVIC FRACTURE [None]
  - CHOLELITHIASIS [None]
  - HYPERTENSION [None]
  - GASTROOESOPHAGEAL REFLUX DISEASE [None]
  - HERNIA [None]
  - RADICULOPATHY [None]
  - MUSCLE STRAIN [None]
  - JOINT DISLOCATION [None]
  - SKIN ULCER [None]
  - JOINT CREPITATION [None]
  - BACK DISORDER [None]
  - INSOMNIA [None]
  - SPINAL OSTEOARTHRITIS [None]
  - FEMUR FRACTURE [None]
  - PAIN IN JAW [None]
  - OEDEMA PERIPHERAL [None]
  - INTERVERTEBRAL DISC DEGENERATION [None]
  - HAEMORRHAGIC ANAEMIA [None]
  - ARACHNOIDITIS [None]
  - ANAEMIA [None]
  - HYPERCHOLESTEROLAEMIA [None]
  - ROTATOR CUFF SYNDROME [None]
  - ABSCESS DRAINAGE [None]
  - SCOLIOSIS [None]
  - IRON DEFICIENCY ANAEMIA [None]
  - OSTEOARTHRITIS [None]
  - LIMB INJURY [None]
  - MIGRAINE [None]
  - COLONIC POLYP [None]
  - BURSITIS [None]
  - IMPAIRED HEALING [None]
  - FALL [None]
  - GASTROINTESTINAL SURGERY [None]
  - CELLULITIS [None]
  - BUNION [None]
